FAERS Safety Report 16953841 (Version 3)
Quarter: 2020Q4

REPORT INFORMATION
  Report Type: Other
  Country: US (occurrence: US)
  Receive Date: 20191023
  Receipt Date: 20201019
  Transmission Date: 20210113
  Serious: Yes (Hospitalization)
  Sender: FDA-Public Use
  Company Number: US-LEADING PHARMA, LLC-2075982

PATIENT
  Age: 7 Month
  Sex: Female

DRUGS (2)
  1. GLYCOPYRROLATE. [Suspect]
     Active Substance: GLYCOPYRROLATE
  2. BTX-A (ONABOTULINUM TOXIN A) [Concomitant]

REACTIONS (2)
  - Bronchial secretion retention [None]
  - Respiratory distress [None]
